FAERS Safety Report 8000650-X (Version None)
Quarter: 2011Q4

REPORT INFORMATION
  Report Type: 
  Country: None (occurrence: None)
  Receive Date: 20111222
  Receipt Date: 20111215
  Transmission Date: 20120403
  Serious: Yes (Hospitalization)
  Sender: FDA-Public Use
  Company Number: JP-JNJFOC-20111010333

PATIENT

DRUGS (2)
  1. GALANTAMINE HYDROBROMIDE [Suspect]
     Route: 048
  2. GALANTAMINE HYDROBROMIDE [Suspect]
     Indication: PRODUCT USED FOR UNKNOWN INDICATION
     Route: 048
     Dates: start: 20110901

REACTIONS (2)
  - HOSPITALISATION [None]
  - DECREASED APPETITE [None]
